FAERS Safety Report 7288978-2 (Version None)
Quarter: 2011Q1

REPORT INFORMATION
  Report Type: 
  Country: None (occurrence: None)
  Receive Date: 20110211
  Receipt Date: 20110112
  Transmission Date: 20110831
  Serious: Yes (Other)
  Sender: FDA-Public Use
  Company Number: PHHY2011DK06551

PATIENT
  Sex: Female

DRUGS (5)
  1. EPIRUBICIN [Suspect]
     Indication: BREAST CANCER
     Dosage: ONCE EVERY THREE WEEKS, 4 TIMES--*//-//////////
     Route: 042
     Dates: start: 20050816
  2. CYCLOPHOSPHAMIDE [Suspect]
     Indication: BREAST CANCER
     Dosage: EVERY THREE WEEKS, 4 TIMES
     Dates: start: 20050816
  3. EPIRUBICIN [Suspect]
     Dosage: UNK
     Route: 042
     Dates: start: 20060117
  4. IRESSA [Suspect]
     Indication: BREAST CANCER
     Dosage: UNK
     Route: 048
     Dates: start: 20050816
  5. CYCLOPHOSPHAMIDE [Suspect]
     Dosage: UNK
     Route: 042
     Dates: start: 20060117

REACTIONS (12)
  - STRESS [None]
  - DISTURBANCE IN ATTENTION [None]
  - NECK PAIN [None]
  - PAIN IN EXTREMITY [None]
  - DEPRESSION [None]
  - MEMORY IMPAIRMENT [None]
  - BACK PAIN [None]
  - COGNITIVE DISORDER [None]
  - PARAESTHESIA [None]
  - MUSCULAR WEAKNESS [None]
  - BREAST PAIN [None]
  - FATIGUE [None]
